FAERS Safety Report 8886485 (Version 5)
Quarter: 2015Q1

REPORT INFORMATION
  Report Type: Spontaneous
  Country: US (occurrence: US)
  Receive Date: 20121105
  Receipt Date: 20150116
  Transmission Date: 20150721
  Serious: Yes (Other)
  Sender: FDA-Public Use
  Company Number: US-009507513-1210USA013150

PATIENT
  Sex: Male
  Weight: 89.25 kg

DRUGS (1)
  1. PROPECIA [Suspect]
     Active Substance: FINASTERIDE
     Indication: ALOPECIA
     Dosage: 1 MG, QD
     Route: 048
     Dates: start: 20050117, end: 20080505

REACTIONS (20)
  - Ejaculation disorder [Unknown]
  - Cognitive disorder [Not Recovered/Not Resolved]
  - Tonsillectomy [Unknown]
  - Hyperlipidaemia [Unknown]
  - Penile wart [Unknown]
  - Coronary artery disease [Unknown]
  - Hydrocele [Unknown]
  - Stress at work [Unknown]
  - Insomnia [Unknown]
  - Sexual dysfunction [Not Recovered/Not Resolved]
  - Pulmonary embolism [Unknown]
  - Catheterisation cardiac [Unknown]
  - Headache [Unknown]
  - Rotator cuff repair [Unknown]
  - Spermatocele [Unknown]
  - Arthroscopic surgery [Unknown]
  - Cardiac failure congestive [Unknown]
  - Epididymal cyst [Unknown]
  - Loss of libido [Not Recovered/Not Resolved]
  - Erectile dysfunction [Unknown]

NARRATIVE: CASE EVENT DATE: 2006
